FAERS Safety Report 6648187-4 (Version None)
Quarter: 2010Q1

REPORT INFORMATION
  Report Type: 
  Country: None (occurrence: None)
  Receive Date: 20100324
  Receipt Date: 20100319
  Transmission Date: 20100710
  Serious: Yes (Other)
  Sender: FDA-Public Use
  Company Number: CHPA2010CA05452

PATIENT
  Sex: Male

DRUGS (1)
  1. TRANSDERM VOYAGER [Suspect]
     Indication: NAUSEA
     Dosage: UNK, UNK
     Route: 062

REACTIONS (2)
  - DIZZINESS [None]
  - LOSS OF CONSCIOUSNESS [None]
